FAERS Safety Report 15636120 (Version 2)
Quarter: 2018Q4

REPORT INFORMATION
  Report Type: Report from Study
  Country: US (occurrence: US)
  Receive Date: 20181120
  Receipt Date: 20181217
  Transmission Date: 20190205
  Serious: Yes (Death, Hospitalization, Other)
  Sender: FDA-Public Use
  Company Number: US-ROCHE-2201580

PATIENT
  Age: 57 Year
  Sex: Female
  Weight: 104.3 kg

DRUGS (15)
  1. ENOXAPARIN [Concomitant]
     Active Substance: ENOXAPARIN
  2. ESOMEPRAZOLE. [Concomitant]
     Active Substance: ESOMEPRAZOLE MAGNESIUM
  3. ATEZOLIZUMAB. [Suspect]
     Active Substance: ATEZOLIZUMAB
     Indication: BILIARY NEOPLASM
     Dosage: IV OVER 30-60 MINUTES ON DAYS 1 AND 15 (AS PER PROTOCOL)?LAST ADMINISTERED DATE : 17/SEP/2018?LAST A
     Route: 042
     Dates: start: 20180807
  4. INSULIN ASPART [Concomitant]
     Active Substance: INSULIN ASPART
  5. FENOFIBRATE. [Concomitant]
     Active Substance: FENOFIBRATE
  6. CARVEDILOL. [Concomitant]
     Active Substance: CARVEDILOL
  7. NYSTATIN. [Concomitant]
     Active Substance: NYSTATIN
  8. OXYCODONE [Concomitant]
     Active Substance: OXYCODONE
  9. COBIMETINIB. [Suspect]
     Active Substance: COBIMETINIB
     Indication: CHOLANGIOCARCINOMA
     Dosage: LAST ADMINISTERED DATE : 23/SEP/2018
     Route: 048
     Dates: start: 20180807
  10. LACTULOSE. [Concomitant]
     Active Substance: LACTULOSE
  11. DOCUSATE SODIUM. [Concomitant]
     Active Substance: DOCUSATE SODIUM
  12. LACTOBACILLUS ACIDOPHILUS [Concomitant]
     Active Substance: LACTOBACILLUS ACIDOPHILUS
  13. ESCITALOPRAM [Concomitant]
     Active Substance: ESCITALOPRAM OXALATE
  14. SENNA [Concomitant]
     Active Substance: SENNA LEAF\SENNOSIDES\SENNOSIDES A AND B
  15. ACETAMINOPHEN. [Concomitant]
     Active Substance: ACETAMINOPHEN

REACTIONS (4)
  - Abdominal pain [Recovered/Resolved]
  - Sepsis [Fatal]
  - Lung infection [Unknown]
  - Respiratory failure [Fatal]

NARRATIVE: CASE EVENT DATE: 20180924
